FAERS Safety Report 7170686-X (Version None)
Quarter: 2010Q4

REPORT INFORMATION
  Report Type: 
  Country: None (occurrence: None)
  Receive Date: 20101214
  Receipt Date: 20101214
  Transmission Date: 20110411
  Serious: Yes (Hospitalization)
  Sender: FDA-Public Use
  Company Number: None

PATIENT
  Age: 62 Year
  Sex: Male
  Weight: 66.6788 kg

DRUGS (2)
  1. RITUXAN [Suspect]
     Indication: LYMPHOMA
     Dosage: 500MG QWEEK IV DRIP
     Route: 041
     Dates: start: 20101207, end: 20101207
  2. RITUXAN [Suspect]
     Dosage: 100MG QWEEK IV DRIP
     Route: 041

REACTIONS (2)
  - INJECTION SITE OEDEMA [None]
  - NAUSEA [None]
